FAERS Safety Report 8520210-1 (Version None)
Quarter: 2012Q3

REPORT INFORMATION
  Report Type: 
  Country: None (occurrence: None)
  Receive Date: 20120709
  Receipt Date: 20091222
  Transmission Date: 20120928
  Serious: Yes (Other)
  Sender: FDA-Public Use
  Company Number: 2009AP005153

PATIENT
  Sex: Female

DRUGS (2)
  1. SILTIAZEM [Concomitant]
  2. DILT-CD [Suspect]
     Indication: ARRHYTHMIA
     Dosage: 120 MG;

REACTIONS (18)
  - URINARY TRACT INFECTION [None]
  - PRODUCT SUBSTITUTION ISSUE [None]
  - DECREASED APPETITE [None]
  - OFF LABEL USE [None]
  - DISEASE PROGRESSION [None]
  - ABNORMAL DREAMS [None]
  - ANXIETY [None]
  - DYSPNOEA [None]
  - SOCIAL AVOIDANT BEHAVIOUR [None]
  - CONFUSIONAL STATE [None]
  - PARANOIA [None]
  - FEAR [None]
  - THINKING ABNORMAL [None]
  - HYPERHIDROSIS [None]
  - DEMENTIA ALZHEIMER'S TYPE [None]
  - EAR PAIN [None]
  - CERUMEN IMPACTION [None]
  - TEMPERATURE INTOLERANCE [None]
